FAERS Safety Report 8025184-8 (Version None)
Quarter: 2012Q1

REPORT INFORMATION
  Report Type: 
  Country: None (occurrence: None)
  Receive Date: 20120105
  Receipt Date: 20120103
  Transmission Date: 20120608
  Serious: Yes (Hospitalization)
  Sender: FDA-Public Use
  Company Number: GB-GLAXOSMITHKLINE-B0737161A

PATIENT
  Sex: Male
  Weight: 69.6 kg

DRUGS (5)
  1. CHLORAMBUCIL [Suspect]
     Indication: CHRONIC LYMPHOCYTIC LEUKAEMIA
     Dosage: 18MG MONTHLY
     Route: 048
     Dates: start: 20100913
  2. ACYCLOVIR [Concomitant]
     Dosage: 600MG PER DAY
     Dates: start: 20100913
  3. ALLOPURINOL [Concomitant]
     Dosage: 300MG PER DAY
     Dates: start: 20100915
  4. MABTHERA [Suspect]
     Indication: CHRONIC LYMPHOCYTIC LEUKAEMIA
     Dosage: 700MG MONTHLY
     Route: 042
     Dates: start: 20100913
  5. COTRIM [Concomitant]
     Dosage: 480MG PER DAY
     Dates: start: 20100913

REACTIONS (1)
  - NEUTROPENIC SEPSIS [None]
